FAERS Safety Report 6911392-3 (Version None)
Quarter: 2010Q3

REPORT INFORMATION
  Report Type: 
  Country: None (occurrence: None)
  Receive Date: 20100806
  Receipt Date: 20100727
  Transmission Date: 20110219
  Serious: Yes (Other)
  Sender: FDA-Public Use
  Company Number: GB-PFIZER INC-2010094302

PATIENT
  Age: 67 Year
  Sex: Male
  Weight: 75 kg

DRUGS (3)
  1. CHAMPIX [Suspect]
     Indication: SMOKING CESSATION THERAPY
     Dosage: 1 MG, 2X/DAY
     Route: 048
     Dates: start: 20100423, end: 20100519
  2. IBUPROFEN [Concomitant]
     Indication: MYALGIA
     Dosage: UNK
     Route: 062
  3. PARACETAMOL [Concomitant]
     Indication: ARTHRITIS
     Route: 048

REACTIONS (4)
  - BLINDNESS TRANSIENT [None]
  - BODY TEMPERATURE INCREASED [None]
  - CYST [None]
  - SWELLING FACE [None]
